FAERS Safety Report 6551691-0 (Version None)
Quarter: 2010Q1

REPORT INFORMATION
  Report Type: 
  Country: None (occurrence: None)
  Receive Date: 20100126
  Receipt Date: 20100113
  Transmission Date: 20100710
  Serious: Yes (Other)
  Sender: FDA-Public Use
  Company Number: PHHY2010DE02370

PATIENT
  Age: 53 Year
  Sex: Female

DRUGS (2)
  1. EXFORGE [Suspect]
     Indication: HYPERTENSION
     Dosage: 1 DF (160/10), QD
     Route: 048
  2. L-THYROXIN [Concomitant]
     Dosage: UNK
     Route: 048

REACTIONS (5)
  - ALOPECIA [None]
  - ANGINA PECTORIS [None]
  - CHEST DISCOMFORT [None]
  - HYPOAESTHESIA [None]
  - SKIN EXFOLIATION [None]
